FAERS Safety Report 9000296 (Version 1)
Quarter: 2013Q1

REPORT INFORMATION
  Report Type: Spontaneous
  Country: US (occurrence: US)
  Receive Date: 20130107
  Receipt Date: 20130107
  Transmission Date: 20140127
  Serious: Yes (Death)
  Sender: FDA-Public Use
  Company Number: US-CELGENE-163-21660-12121041

PATIENT
  Age: 61 Year
  Sex: Female

DRUGS (3)
  1. ABRAXANE [Suspect]
     Indication: PANCREATIC CARCINOMA
     Dosage: 90 MILLIGRAM/SQ. METER
     Route: 041
     Dates: start: 20121114, end: 20121114
  2. ABRAXANE [Suspect]
     Indication: PANCREATIC CARCINOMA
  3. GEMCITABINE [Concomitant]
     Indication: PANCREATIC CARCINOMA
     Dosage: 750 MILLIGRAM/SQ. METER
     Route: 041
     Dates: start: 20120716, end: 20121114

REACTIONS (1)
  - Pancreatic carcinoma [Fatal]
